FAERS Safety Report 20964464 (Version 6)
Quarter: 2022Q4

REPORT INFORMATION
  Report Type: Report from Study
  Country: US (occurrence: US)
  Receive Date: 20220615
  Receipt Date: 20221014
  Transmission Date: 20230112
  Serious: Yes (Hospitalization, Other)
  Sender: FDA-Public Use
  Company Number: US-UCBSA-2022032612

PATIENT
  Sex: Female

DRUGS (1)
  1. CERTOLIZUMAB PEGOL [Suspect]
     Active Substance: CERTOLIZUMAB PEGOL
     Indication: Psoriatic arthropathy
     Dosage: 400 MILLIGRAM, EV 4 WEEKS
     Route: 058
     Dates: start: 20220401

REACTIONS (8)
  - COVID-19 [Recovering/Resolving]
  - Surgery [Not Recovered/Not Resolved]
  - Diabetic foot [Recovering/Resolving]
  - Pneumonia bacterial [Recovering/Resolving]
  - Gastric infection [Recovering/Resolving]
  - Confusional state [Recovering/Resolving]
  - Memory impairment [Recovering/Resolving]
  - Otorrhoea [Recovering/Resolving]

NARRATIVE: CASE EVENT DATE: 20220101
